APPROVED DRUG PRODUCT: TETRACYCLINE HYDROCHLORIDE
Active Ingredient: TETRACYCLINE HYDROCHLORIDE
Strength: 125MG/5ML
Dosage Form/Route: SUSPENSION;ORAL
Application: A060446 | Product #001
Applicant: PROTER LABORATORY SPA
Approved: Approved Prior to Jan 1, 1982 | RLD: No | RS: No | Type: DISCN